FAERS Safety Report 5832759-0 (Version None)
Quarter: 2008Q3

REPORT INFORMATION
  Report Type: 
  Country: None (occurrence: None)
  Receive Date: 20080804
  Receipt Date: 20080723
  Transmission Date: 20090109
  Serious: Yes (Other)
  Sender: FDA-Public Use
  Company Number: US-PFIZER INC-2008052544

PATIENT
  Sex: Female
  Weight: 77 kg

DRUGS (4)
  1. CHANTIX [Suspect]
     Indication: SMOKING CESSATION THERAPY
     Route: 048
  2. PROZAC [Concomitant]
     Indication: DEPRESSION
  3. LIPITOR [Concomitant]
  4. FOSAMAX [Concomitant]

REACTIONS (1)
  - DEPRESSION [None]
